FAERS Safety Report 5766107-1 (Version None)
Quarter: 2008Q2

REPORT INFORMATION
  Report Type: 
  Country: None (occurrence: None)
  Receive Date: 20080611
  Receipt Date: 20080520
  Transmission Date: 20081010
  Serious: Yes (Other)
  Sender: FDA-Public Use
  Company Number: US-ABBOTT-08P-163-0455377-00

PATIENT
  Age: 60 Year
  Sex: Female

DRUGS (1)
  1. TRICOR [Suspect]
     Indication: BLOOD TRIGLYCERIDES INCREASED

REACTIONS (7)
  - BACK PAIN [None]
  - CATARACT [None]
  - CHEST PAIN [None]
  - DIABETES MELLITUS [None]
  - HERNIA [None]
  - PAIN IN EXTREMITY [None]
  - VISUAL ACUITY REDUCED [None]
